FAERS Safety Report 17615733 (Version 1)
Quarter: 2020Q1

REPORT INFORMATION
  Report Type: Spontaneous
  Country: US (occurrence: US)
  Receive Date: 20200331
  Receipt Date: 20200331
  Transmission Date: 20200409
  Serious: Yes (Hospitalization)
  Sender: FDA-Public Use
  Company Number: None

PATIENT
  Age: 63 Year
  Sex: Male

DRUGS (1)
  1. VITRAKVI [Suspect]
     Active Substance: LAROTRECTINIB
     Indication: SALIVARY GLAND CANCER
     Route: 048
     Dates: start: 20200213

REACTIONS (1)
  - Ear infection [None]

NARRATIVE: CASE EVENT DATE: 202002
